FAERS Safety Report 4441982-1 (Version None)
Quarter: 2004Q3

REPORT INFORMATION
  Report Type: 
  Country: None (occurrence: None)
  Receive Date: 20040907
  Receipt Date: 20040826
  Transmission Date: 20050211
  Serious: Yes (Disabling)
  Sender: FDA-Public Use
  Company Number: GB-GLAXOSMITHKLINE-B0343724A

PATIENT
  Age: 64 Year
  Sex: Female
  Weight: 62.7 kg

DRUGS (4)
  1. MALARONE [Suspect]
     Indication: MALARIA PROPHYLAXIS
     Dosage: 1TAB PER DAY
     Route: 048
     Dates: start: 20021013, end: 20021024
  2. THYROXINE [Concomitant]
     Indication: THYROID DISORDER
     Dosage: 100MCG PER DAY
     Route: 048
     Dates: start: 19870101
  3. PROGUANIL [Concomitant]
  4. MULTI-VITAMINS [Concomitant]

REACTIONS (3)
  - PHOTOSENSITIVE RASH [None]
  - RASH ERYTHEMATOUS [None]
  - RASH PRURITIC [None]
